FAERS Safety Report 17576636 (Version 1)
Quarter: 2020Q1

REPORT INFORMATION
  Report Type: Spontaneous
  Country: GB (occurrence: GB)
  Receive Date: 20200324
  Receipt Date: 20200324
  Transmission Date: 20200409
  Serious: Yes (Other)
  Sender: FDA-Public Use
  Company Number: GB-ACCORD-176660

PATIENT
  Age: 72 Year
  Sex: Male
  Weight: 80 kg

DRUGS (2)
  1. FINASTERIDE. [Suspect]
     Active Substance: FINASTERIDE
     Indication: PROSTATIC DISORDER
     Route: 048
     Dates: start: 20200214, end: 20200304
  2. TAMSULOSIN [Concomitant]
     Active Substance: TAMSULOSIN
     Indication: PROSTATIC DISORDER
     Dates: start: 20200214

REACTIONS (2)
  - Depression [Recovering/Resolving]
  - Decreased interest [Unknown]

NARRATIVE: CASE EVENT DATE: 20200218
